FAERS Safety Report 9308427 (Version 3)
Quarter: 2014Q1

REPORT INFORMATION
  Report Type: Spontaneous
  Country: US (occurrence: US)
  Receive Date: 20130524
  Receipt Date: 20140103
  Transmission Date: 20141002
  Serious: Yes (Death, Hospitalization)
  Sender: FDA-Public Use
  Company Number: US-B.I. PHARMACEUTICALS,INC./RIDGEFIELD-2013-BI-14536BP

PATIENT
  Age: 74 Year
  Sex: Female
  Weight: 81.65 kg

DRUGS (8)
  1. PRADAXA [Suspect]
     Indication: ATRIAL FIBRILLATION
     Dosage: 300 MG
     Route: 048
     Dates: start: 20110106, end: 20120804
  2. LEVOTHROID [Concomitant]
     Dosage: 50 MCG
     Route: 048
  3. MILK OF MAGNESIA [Concomitant]
     Indication: CONSTIPATION
     Route: 048
  4. PANTOPRAZOLE [Concomitant]
     Dosage: 40 MG
     Route: 048
  5. ACETAMINOPHEN [Concomitant]
     Indication: PYREXIA
     Route: 048
  6. CARVEDILOL [Concomitant]
     Dosage: 6.25 MG
     Route: 048
  7. MULTIVITAMIN WITH MINERALS [Concomitant]
     Route: 048
  8. PERCOCET [Concomitant]
     Indication: PAIN

REACTIONS (10)
  - Gastrointestinal haemorrhage [Fatal]
  - Shock haemorrhagic [Fatal]
  - Septic shock [Fatal]
  - Respiratory failure [Fatal]
  - Encephalopathy [Fatal]
  - Coagulopathy [Unknown]
  - Thrombocytopenia [Unknown]
  - Haemorrhagic anaemia [Unknown]
  - Urinary tract infection [Unknown]
  - Haematoma [Unknown]
